FAERS Safety Report 15307754 (Version 3)
Quarter: 2018Q4

REPORT INFORMATION
  Report Type: Not Available
  Country: US (occurrence: US)
  Receive Date: 20180822
  Receipt Date: 20181019
  Transmission Date: 20190204
  Serious: No
  Sender: FDA-Public Use
  Company Number: US-NEUROCRINE BIOSCIENCES INC.-2018NBI02421

PATIENT
  Sex: Female

DRUGS (4)
  1. INGREZZA [Suspect]
     Active Substance: VALBENAZINE
     Indication: PRODUCT USED FOR UNKNOWN INDICATION
     Route: 048
     Dates: start: 20180531, end: 2018
  2. ABILIFY [Concomitant]
     Active Substance: ARIPIPRAZOLE
  3. WOMAN^S VITAMIN [Concomitant]
  4. ELIQUIS [Concomitant]
     Active Substance: APIXABAN

REACTIONS (2)
  - Rash erythematous [Unknown]
  - Eye pruritus [Unknown]

NARRATIVE: CASE EVENT DATE: 2018
